FAERS Safety Report 6229363-1 (Version None)
Quarter: 2009Q2

REPORT INFORMATION
  Report Type: 
  Country: None (occurrence: None)
  Receive Date: 20090615
  Receipt Date: 20090604
  Transmission Date: 20091009
  Serious: Yes (Hospitalization, Other)
  Sender: FDA-Public Use
  Company Number: DK-JNJFOC-20090500113

PATIENT
  Sex: Female
  Weight: 78 kg

DRUGS (6)
  1. REMICADE [Suspect]
     Route: 042
  2. REMICADE [Suspect]
     Indication: PSORIATIC ARTHROPATHY
     Route: 042
  3. METHOTREXATE [Concomitant]
  4. PULMICORT-100 [Concomitant]
  5. PAMOL [Concomitant]
  6. LOCOID LIPOCREAM [Concomitant]

REACTIONS (3)
  - COUGH [None]
  - MEDIASTINAL MASS [None]
  - PYREXIA [None]
